FAERS Safety Report 9129052 (Version 1)
Quarter: 2013Q1

REPORT INFORMATION
  Report Type: Spontaneous
  Country: US (occurrence: US)
  Receive Date: 20130228
  Receipt Date: 20130228
  Transmission Date: 20140127
  Serious: No
  Sender: FDA-Public Use
  Company Number: US-ROXANE LABORATORIES, INC.-2013-RO-00296RO

PATIENT
  Age: 48 Year
  Sex: Male

DRUGS (3)
  1. FUROSEMIDE [Suspect]
     Indication: OEDEMA
     Dosage: 320 MG
     Route: 048
  2. FUROSEMIDE [Suspect]
     Dosage: 160 MG
     Route: 048
  3. DEPAKOTE [Concomitant]
     Indication: CONVULSION

REACTIONS (3)
  - Tremor [Not Recovered/Not Resolved]
  - Fall [Unknown]
  - Renal disorder [Not Recovered/Not Resolved]
